FAERS Safety Report 5134523-7 (Version None)
Quarter: 2006Q4

REPORT INFORMATION
  Report Type: 
  Country: None (occurrence: None)
  Receive Date: 20061025
  Receipt Date: 20051121
  Transmission Date: 20070319
  Serious: Yes (Death)
  Sender: FDA-Public Use
  Company Number: US-AVENTIS-200520397US

PATIENT
  Age: 68 Year

DRUGS (16)
  1. LANTUS [Suspect]
     Indication: DIABETES MELLITUS NON-INSULIN-DEPENDENT
     Dates: start: 20051111
  2. LANTUS [Suspect]
  3. OPTICLIK (INSULIN INJECTION PEN) [Suspect]
  4. NOVOLOG [Concomitant]
  5. COREG [Concomitant]
  6. DIGOXIN [Concomitant]
  7. ASPIRIN [Concomitant]
     Dosage: DOSE: UNK
  8. FOLIC ACID [Concomitant]
  9. PEPCID AC [Concomitant]
     Dosage: DOSE: UNK
  10. ASCORBIC ACID [Concomitant]
     Dosage: DOSE: UNK
  11. VITAMIN E [Concomitant]
     Dosage: DOSE: UNK
  12. B12 [Concomitant]
     Dosage: DOSE: UNK
  13. IRON [Concomitant]
  14. CRANBERRY [Concomitant]
     Dosage: DOSE: UNK
  15. FLOMAX [Concomitant]
     Dosage: DOSE: UNK
  16. VICODIN [Concomitant]
     Dosage: DOSE: UNK

REACTIONS (6)
  - ASTHENIA [None]
  - BLOOD GLUCOSE INCREASED [None]
  - LIVER DISORDER [None]
  - LUNG CANCER METASTATIC [None]
  - METASTASES TO LIVER [None]
  - PHARMACEUTICAL PRODUCT COMPLAINT [None]
